FAERS Safety Report 6915345-0 (Version None)
Quarter: 2010Q3

REPORT INFORMATION
  Report Type: 
  Country: None (occurrence: None)
  Receive Date: 20100809
  Receipt Date: 20091116
  Transmission Date: 20110219
  Serious: No
  Sender: FDA-Public Use
  Company Number: US-ABBOTT-09P-163-0609657-00

PATIENT
  Sex: Male
  Weight: 72.64 kg

DRUGS (6)
  1. DEPAKOTE ER [Suspect]
     Indication: BIPOLAR DISORDER
     Dates: start: 20091108
  2. DEPAKOTE ER [Suspect]
     Indication: OBSESSIVE-COMPULSIVE DISORDER
  3. DEPAKOTE ER [Suspect]
     Indication: OPPOSITIONAL DEFIANT DISORDER
  4. DEPAKOTE ER [Suspect]
     Indication: ATTENTION DEFICIT/HYPERACTIVITY DISORDER
  5. DIPHENHYDRAMINE [Concomitant]
     Indication: INSOMNIA
  6. CITALOPRAM [Concomitant]
     Indication: PRODUCT USED FOR UNKNOWN INDICATION

REACTIONS (3)
  - AMNESIA [None]
  - DYSARTHRIA [None]
  - SOMNOLENCE [None]
